FAERS Safety Report 5016114-1 (Version None)
Quarter: 2006Q2

REPORT INFORMATION
  Report Type: 
  Country: None (occurrence: None)
  Receive Date: 20060414
  Receipt Date: 20060307
  Transmission Date: 20061013
  Serious: No
  Sender: FDA-Public Use
  Company Number: 2006SP001103

PATIENT
  Age: 76 Year
  Sex: Male

DRUGS (2)
  1. LUNESTA [Suspect]
     Dosage: 2 MG GASTROSTOMY TUBE
     Route: 050
     Dates: start: 20060306
  2. AMBIEN [Concomitant]

REACTIONS (1)
  - HEADACHE [None]
